FAERS Safety Report 6644088-6 (Version None)
Quarter: 2010Q1

REPORT INFORMATION
  Report Type: 
  Country: None (occurrence: None)
  Receive Date: 20100322
  Receipt Date: 20100316
  Transmission Date: 20100710
  Serious: Yes (Other)
  Sender: FDA-Public Use
  Company Number: US-SANOFI-AVENTIS-2009SA011903

PATIENT
  Age: 39 Year
  Sex: Male
  Weight: 86 kg

DRUGS (4)
  1. LOVENOX [Suspect]
     Route: 065
     Dates: start: 20091225, end: 20100107
  2. LOVENOX [Suspect]
     Indication: PULMONARY EMBOLISM
     Route: 065
     Dates: start: 20091225, end: 20100107
  3. LOVENOX [Suspect]
     Route: 065
     Dates: start: 20091225, end: 20100107
  4. WARFARIN SODIUM [Suspect]
     Indication: ANTICOAGULANT THERAPY
     Dates: start: 20091225

REACTIONS (3)
  - EPISTAXIS [None]
  - PULMONARY OEDEMA [None]
  - TACHYARRHYTHMIA [None]
